FAERS Safety Report 20531084 (Version 1)
Quarter: 2022Q1

REPORT INFORMATION
  Report Type: Spontaneous
  Country: US (occurrence: US)
  Receive Date: 20220301
  Receipt Date: 20220301
  Transmission Date: 20220424
  Serious: Yes (Hospitalization)
  Sender: FDA-Public Use
  Company Number: US-Accord-255356

PATIENT
  Age: 26 Year
  Sex: Male

DRUGS (1)
  1. ARIPIPRAZOLE [Suspect]
     Active Substance: ARIPIPRAZOLE
     Indication: Schizophrenia
     Dosage: 5  MG AND THEN 7.5 MG THE NEXT DAY, THEN INCREASED TO 10 MG FOR 3DAYS AND THEN 15 MG FOR 3 DAYS
     Route: 048

REACTIONS (1)
  - Psychotic disorder [Recovered/Resolved]
